FAERS Safety Report 14430759 (Version 3)
Quarter: 2018Q2

REPORT INFORMATION
  Report Type: Report from Study
  Country: CA (occurrence: CA)
  Receive Date: 20180124
  Receipt Date: 20180503
  Transmission Date: 20180711
  Serious: Yes (Death, Hospitalization, Other)
  Sender: FDA-Public Use
  Company Number: CA-BRISTOL-MYERS SQUIBB COMPANY-BMS-2018-002810

PATIENT
  Age: 75 Year
  Sex: Female

DRUGS (1)
  1. ABATACEPT [Suspect]
     Active Substance: ABATACEPT
     Indication: RHEUMATOID ARTHRITIS
     Dosage: 750 MG, Q4WK
     Route: 042
     Dates: start: 20101112, end: 20180308

REACTIONS (4)
  - Death [Fatal]
  - Temporal arteritis [Unknown]
  - Eye contusion [Unknown]
  - Aortic stenosis [Not Recovered/Not Resolved]

NARRATIVE: CASE EVENT DATE: 20171123
